FAERS Safety Report 7005767-4 (Version None)
Quarter: 2010Q3

REPORT INFORMATION
  Report Type: 
  Country: None (occurrence: None)
  Receive Date: 20100921
  Receipt Date: 20100908
  Transmission Date: 20110219
  Serious: Yes (Hospitalization)
  Sender: FDA-Public Use
  Company Number: AU-ELI_LILLY_AND_COMPANY-AU201009001940

PATIENT
  Sex: Male

DRUGS (17)
  1. GEMCITABINE HCL [Suspect]
     Indication: PANCREATIC CARCINOMA METASTATIC
     Dosage: 1000 MG/M2, UNKNOWN
     Route: 065
     Dates: start: 20100825
  2. PACLITAXEL [Suspect]
     Indication: PANCREATIC CARCINOMA METASTATIC
     Dosage: 125 MG/M2, UNKNOWN
     Route: 065
     Dates: start: 20100825
  3. OXYCODONE HCL [Concomitant]
     Indication: ABDOMINAL PAIN
     Route: 048
     Dates: start: 20100601, end: 20100820
  4. CEFTRIAXONE [Concomitant]
     Indication: PYREXIA
     Route: 042
     Dates: start: 20100826, end: 20100826
  5. TIMENTIN [Concomitant]
     Indication: PYREXIA
     Route: 042
     Dates: start: 20100826, end: 20100826
  6. CLEXANE [Concomitant]
     Indication: PROPHYLAXIS
     Route: 058
     Dates: start: 20020101
  7. ZOCOR [Concomitant]
     Indication: PROPHYLAXIS
     Route: 048
     Dates: start: 20020101
  8. CARTIA /HKG/ [Concomitant]
     Indication: PROPHYLAXIS
     Route: 048
     Dates: start: 20020101
  9. ACETAMINOPHEN [Concomitant]
     Indication: PROPHYLAXIS
     Dosage: UNK, UNK
     Route: 048
     Dates: start: 20020101
  10. CREON [Concomitant]
     Indication: PROPHYLAXIS
     Route: 048
     Dates: start: 20100101
  11. NULYTELY [Concomitant]
     Indication: PROPHYLAXIS
     Route: 048
     Dates: start: 20100601
  12. COLOXYL [Concomitant]
     Indication: PROPHYLAXIS
     Route: 048
     Dates: start: 20100601
  13. SENNA [Concomitant]
     Indication: PROPHYLAXIS
     Route: 048
     Dates: start: 20100601
  14. GRANISETRON HCL [Concomitant]
     Indication: PROPHYLAXIS
     Route: 042
     Dates: start: 20100825
  15. GRANISETRON HCL [Concomitant]
     Route: 048
     Dates: start: 20100826
  16. IBUPROFEN [Concomitant]
     Indication: ABDOMINAL PAIN
     Route: 048
     Dates: start: 20100901
  17. OXYCODONE HCL [Concomitant]
     Indication: ABDOMINAL PAIN
     Route: 048
     Dates: start: 20100820

REACTIONS (2)
  - DEHYDRATION [None]
  - VOMITING [None]
